FAERS Safety Report 16213859 (Version 1)
Quarter: 2019Q2

REPORT INFORMATION
  Report Type: Report from Study
  Country: FR (occurrence: FR)
  Receive Date: 20190418
  Receipt Date: 20190418
  Transmission Date: 20190711
  Serious: Yes (Hospitalization, Other)
  Sender: FDA-Public Use
  Company Number: FR-PFM-2019-04256

PATIENT

DRUGS (4)
  1. ZARZIO [Suspect]
     Active Substance: FILGRASTIM
     Indication: FEBRILE NEUTROPENIA
     Dosage: 30 MU, QD (POST COURSE)
     Route: 058
     Dates: start: 20171023
  2. VINORELBINE TARTRATE. [Suspect]
     Active Substance: VINORELBINE TARTRATE
     Indication: OESOPHAGEAL CARCINOMA
     Dosage: 47 MG, UNK
     Route: 065
     Dates: start: 20171023, end: 20171024
  3. CISPLATINE [Suspect]
     Active Substance: CISPLATIN
     Indication: OESOPHAGEAL CARCINOMA
     Dosage: 126 MG, UNK
     Route: 065
     Dates: start: 20171023, end: 20171024
  4. VINORELBINE TARTRATE. [Suspect]
     Active Substance: VINORELBINE TARTRATE
     Indication: OFF LABEL USE

REACTIONS (8)
  - Renal failure [Recovered/Resolved]
  - Abdominal pain [Unknown]
  - Nausea [Recovered/Resolved]
  - Neutropenia [Recovered/Resolved]
  - Dehydration [Recovered/Resolved]
  - Off label use [Unknown]
  - Vomiting [Recovered/Resolved]
  - Product use in unapproved indication [Unknown]

NARRATIVE: CASE EVENT DATE: 20171023
